FAERS Safety Report 4984438-X (Version None)
Quarter: 2006Q2

REPORT INFORMATION
  Report Type: 
  Country: None (occurrence: None)
  Receive Date: 20060421
  Receipt Date: 20060413
  Transmission Date: 20061013
  Serious: Yes (Other)
  Sender: FDA-Public Use
  Company Number: 2006026631

PATIENT
  Sex: Female
  Weight: 43.0917 kg

DRUGS (4)
  1. NORVASC [Suspect]
     Indication: HYPERTENSION
     Dosage: 5 MG
  2. VITAMINS [Concomitant]
  3. VITAMINS, OTHER COMBINATIONS [Concomitant]
  4. CALCIUM GLUCONATE [Concomitant]

REACTIONS (7)
  - ANXIETY [None]
  - BODY TEMPERATURE DECREASED [None]
  - BONE DISORDER [None]
  - DISCOMFORT [None]
  - HEADACHE [None]
  - LYMPHOPLASMACYTOID LYMPHOMA/IMMUNOCYTOMA [None]
  - URINARY TRACT INFECTION [None]
